FAERS Safety Report 4433741-0 (Version None)
Quarter: 2004Q3

REPORT INFORMATION
  Report Type: 
  Country: None (occurrence: None)
  Receive Date: 20040825
  Receipt Date: 20040823
  Transmission Date: 20050211
  Serious: Yes (Life-Threatening, Hospitalization, Other)
  Sender: FDA-Public Use
  Company Number: 200227452BWH

PATIENT
  Age: 70 Year
  Sex: Male
  Weight: 86.1834 kg

DRUGS (10)
  1. AVELOX [Suspect]
     Indication: SINUSITIS
     Dosage: QD, ORAL
     Route: 048
     Dates: start: 20021115, end: 20021121
  2. ALLOPURINOL [Concomitant]
  3. CARDURA [Concomitant]
  4. IMDUR [Concomitant]
  5. ZOCOR [Concomitant]
  6. ECOTRIN [Concomitant]
  7. ACCUPRIL [Concomitant]
  8. TYLENOL [Concomitant]
  9. VICODIN [Concomitant]
  10. SYNTHROID [Concomitant]

REACTIONS (13)
  - ACUTE PRERENAL FAILURE [None]
  - ANAEMIA [None]
  - COLITIS ISCHAEMIC [None]
  - DERMATITIS EXFOLIATIVE [None]
  - GASTROINTESTINAL HAEMORRHAGE [None]
  - PEMPHIGUS [None]
  - PROSTATITIS [None]
  - PSEUDOMONAS INFECTION [None]
  - STAPHYLOCOCCAL INFECTION [None]
  - STEVENS-JOHNSON SYNDROME [None]
  - THERAPY NON-RESPONDER [None]
  - TOXIC EPIDERMAL NECROLYSIS [None]
  - UROSEPSIS [None]
